FAERS Safety Report 10549430 (Version 3)
Quarter: 2015Q1

REPORT INFORMATION
  Report Type: Spontaneous
  Country: JP (occurrence: JP)
  Receive Date: 20141028
  Receipt Date: 20150122
  Transmission Date: 20150720
  Serious: Yes (Death)
  Sender: FDA-Public Use
  Company Number: JP-PFIZER INC-2014295558

PATIENT
  Age: 87 Year
  Sex: Female
  Weight: 40 kg

DRUGS (8)
  1. CLARITH [Concomitant]
     Active Substance: CLARITHROMYCIN
     Dosage: 200 MG, DAILY
     Route: 048
     Dates: end: 20141015
  2. THEO-DUR [Concomitant]
     Active Substance: THEOPHYLLINE ANHYDROUS
     Dosage: 100 MG, DAILY
     Route: 048
     Dates: end: 20141015
  3. SULPIRIDE [Concomitant]
     Active Substance: SULPIRIDE
     Dosage: UNK
     Route: 048
     Dates: end: 20141015
  4. ZOSYN [Suspect]
     Active Substance: PIPERACILLIN SODIUM\TAZOBACTAM SODIUM
     Indication: PNEUMONIA
     Dosage: 4.5 G, 1X/DAY
     Route: 041
     Dates: start: 20141015, end: 20141015
  5. FULPEN [Concomitant]
     Dosage: 4 MG, DAILY
     Route: 048
     Dates: end: 20141015
  6. CALONAL [Concomitant]
     Active Substance: ACETAMINOPHEN
     Dosage: 200 MG, DAILY
     Route: 048
     Dates: end: 20141015
  7. FENELMIN [Concomitant]
     Dosage: 50 MG, DAILY
     Route: 048
     Dates: end: 20141015
  8. DILTIAZEM HYDROCHLORIDE R [Concomitant]
     Active Substance: DILTIAZEM HYDROCHLORIDE
     Dosage: 100 MG, DAILY
     Route: 048
     Dates: end: 20141015

REACTIONS (2)
  - Depressed level of consciousness [Fatal]
  - Hypoglycaemia [Fatal]

NARRATIVE: CASE EVENT DATE: 20141015
